FAERS Safety Report 6107422-1 (Version None)
Quarter: 2009Q1

REPORT INFORMATION
  Report Type: 
  Country: None (occurrence: None)
  Receive Date: 20090309
  Receipt Date: 20090302
  Transmission Date: 20090719
  Serious: Yes (Hospitalization, Other)
  Sender: FDA-Public Use
  Company Number: MX-ELI_LILLY_AND_COMPANY-MX200902002902

PATIENT
  Age: 40 Year
  Sex: Female
  Weight: 80 kg

DRUGS (2)
  1. CYMBALTA [Suspect]
     Indication: DEPRESSION
     Dosage: 60 MG, DAILY (1/D)
     Route: 048
     Dates: start: 20060101
  2. CLONAZEPAM [Concomitant]
     Indication: INSOMNIA
     Dosage: 1 MG, DAILY (1/D)
     Route: 065

REACTIONS (8)
  - DIZZINESS [None]
  - DYSPNOEA [None]
  - HAEMORRHAGE [None]
  - HEADACHE [None]
  - INFLUENZA [None]
  - PAIN [None]
  - TENSION [None]
  - UTERINE LEIOMYOMA [None]
